FAERS Safety Report 16309400 (Version 1)
Quarter: 2019Q2

REPORT INFORMATION
  Report Type: Spontaneous
  Country: US (occurrence: US)
  Receive Date: 20190514
  Receipt Date: 20190514
  Transmission Date: 20190711
  Serious: No
  Sender: FDA-Public Use
  Company Number: US-ELI_LILLY_AND_COMPANY-US201905005449

PATIENT
  Sex: Female

DRUGS (2)
  1. BASAGLAR [Suspect]
     Active Substance: INSULIN GLARGINE
     Indication: PRODUCT USED FOR UNKNOWN INDICATION
     Dosage: 23 INTERNATIONAL UNIT, UNKNOWN
  2. BASAGLAR [Suspect]
     Active Substance: INSULIN GLARGINE
     Dosage: 23 INTERNATIONAL UNIT, UNKNOWN

REACTIONS (1)
  - Injection site pain [Unknown]
